FAERS Safety Report 13391800 (Version 1)
Quarter: 2017Q1

REPORT INFORMATION
  Report Type: Spontaneous
  Country: US (occurrence: US)
  Receive Date: 20170331
  Receipt Date: 20170331
  Transmission Date: 20170429
  Serious: No
  Sender: FDA-Public Use
  Company Number: US-MYLANLABS-2016M1020904

PATIENT
  Age: 84 Year
  Sex: Male

DRUGS (2)
  1. FENTANYL. [Suspect]
     Active Substance: FENTANYL
     Dosage: UNK
     Dates: end: 20160411
  2. MYRBETRIQ [Suspect]
     Active Substance: MIRABEGRON
     Dosage: 25 MG, QD
     Dates: start: 20160301

REACTIONS (7)
  - Anxiety [Unknown]
  - Dry throat [Unknown]
  - Vision blurred [Unknown]
  - Withdrawal syndrome [Unknown]
  - Nasal dryness [Unknown]
  - Tremor [Unknown]
  - Initial insomnia [Unknown]
